FAERS Safety Report 24173530 (Version 1)
Quarter: 2024Q3

REPORT INFORMATION
  Report Type: Spontaneous
  Country: US (occurrence: US)
  Receive Date: 20240805
  Receipt Date: 20240805
  Transmission Date: 20241017
  Serious: Yes (Hospitalization, Other)
  Sender: Kilitch Healthcare
  Company Number: US-KHC-000066

PATIENT
  Age: 52 Year
  Sex: Female

DRUGS (1)
  1. MULTI-ACTION RELIEF [Suspect]
     Active Substance: POLYVINYL ALCOHOL\POVIDONE\TETRAHYDROZOLINE HYDROCHLORIDE
     Indication: Product used for unknown indication
     Route: 065
     Dates: start: 20230404, end: 20231103

REACTIONS (8)
  - Vision blurred [Not Recovered/Not Resolved]
  - Eye swelling [Not Recovered/Not Resolved]
  - Eye pruritus [Not Recovered/Not Resolved]
  - Ocular hyperaemia [Not Recovered/Not Resolved]
  - Periorbital swelling [Not Recovered/Not Resolved]
  - Blindness [Not Recovered/Not Resolved]
  - Recalled product administered [Unknown]
  - Eye pain [Unknown]

NARRATIVE: CASE EVENT DATE: 20230101
